FAERS Safety Report 6169655-8 (Version None)
Quarter: 2009Q2

REPORT INFORMATION
  Report Type: 
  Country: None (occurrence: None)
  Receive Date: 20090428
  Receipt Date: 20090424
  Transmission Date: 20091009
  Serious: Yes (Death)
  Sender: FDA-Public Use
  Company Number: US-MEDIMMUNE-MEDI-0007793

PATIENT
  Sex: Female

DRUGS (3)
  1. SYNAGIS [Suspect]
     Indication: PREMATURE BABY
     Route: 030
     Dates: start: 20081111, end: 20090102
  2. SYNAGIS [Suspect]
     Route: 030
     Dates: start: 20081111
  3. SYNAGIS [Suspect]
     Route: 030
     Dates: start: 20081121

REACTIONS (1)
  - SUDDEN INFANT DEATH SYNDROME [None]
